FAERS Safety Report 20340766 (Version 1)
Quarter: 2022Q1

REPORT INFORMATION
  Report Type: Spontaneous
  Country: US (occurrence: None)
  Receive Date: 20220117
  Receipt Date: 20220117
  Transmission Date: 20220424
  Serious: Yes (Death, Life-Threatening)
  Sender: FDA-Public Use
  Company Number: 2022A021866

PATIENT
  Sex: Female

DRUGS (1)
  1. BRILINTA [Suspect]
     Active Substance: TICAGRELOR
     Indication: Product used for unknown indication
     Dosage: 180 MG
     Route: 048
     Dates: start: 2021

REACTIONS (2)
  - Death [Fatal]
  - Haemorrhage [Unknown]
